FAERS Safety Report 4645379-0 (Version None)
Quarter: 2005Q2

REPORT INFORMATION
  Report Type: 
  Country: None (occurrence: None)
  Receive Date: 20050425
  Receipt Date: 20050412
  Transmission Date: 20051028
  Serious: Yes (Other)
  Sender: FDA-Public Use
  Company Number: 2005059444

PATIENT
  Age: 55 Year
  Sex: Female

DRUGS (3)
  1. BEXTRA [Suspect]
     Indication: ILL-DEFINED DISORDER
     Dosage: (DAILY), ORAL
     Route: 048
     Dates: start: 20041111, end: 20041112
  2. ANXIOLYTICS (ANXIOLYTICS) [Concomitant]
  3. ANTIDEPRESSANTS (ANTIDEPRESSANTS) [Concomitant]

REACTIONS (5)
  - EYE DISORDER [None]
  - LYMPHOMA [None]
  - RASH [None]
  - SKIN BURNING SENSATION [None]
  - SKIN EXFOLIATION [None]
